FAERS Safety Report 4684020-8 (Version None)
Quarter: 2005Q2

REPORT INFORMATION
  Report Type: 
  Country: None (occurrence: None)
  Receive Date: 20050607
  Receipt Date: 20050516
  Transmission Date: 20051028
  Serious: Yes (Other)
  Sender: FDA-Public Use
  Company Number: US-MERCK-0505USA01911

PATIENT
  Age: 78 Year
  Sex: Female
  Weight: 47 kg

DRUGS (8)
  1. FOSAMAX [Suspect]
     Indication: OSTEOPOROSIS
     Route: 048
     Dates: start: 20000101
  2. CALCIUM (UNSPECIFIED) [Concomitant]
     Route: 065
  3. PAXIL [Concomitant]
     Route: 065
  4. EVISTA [Concomitant]
     Route: 065
  5. VITAMINS (UNSPECIFIED) [Concomitant]
     Route: 065
  6. ZOCOR [Concomitant]
     Route: 048
  7. MOBIC [Concomitant]
     Route: 065
  8. [THERAPY UNSPECIFIED] [Concomitant]
     Indication: HYPERTENSION
     Route: 065

REACTIONS (2)
  - BONE DENSITY DECREASED [None]
  - RENAL CELL CARCINOMA STAGE UNSPECIFIED [None]
